FAERS Safety Report 22356406 (Version 1)
Quarter: 2023Q2

REPORT INFORMATION
  Report Type: Spontaneous
  Country: US (occurrence: None)
  Receive Date: 20230523
  Receipt Date: 20230523
  Transmission Date: 20230722
  Serious: No
  Sender: FDA-Public Use
  Company Number: None

PATIENT
  Age: 39 Year
  Sex: Male
  Weight: 198.67 kg

DRUGS (1)
  1. SKYRIZI [Suspect]
     Active Substance: RISANKIZUMAB-RZAA
     Indication: Psoriatic arthropathy
     Dosage: OTHER FREQUENCY : WK 0 AND WK 4;?
     Route: 058
     Dates: start: 202212

REACTIONS (1)
  - Sepsis [None]
